FAERS Safety Report 6102805-8 (Version None)
Quarter: 2009Q1

REPORT INFORMATION
  Report Type: 
  Country: None (occurrence: None)
  Receive Date: 20090304
  Receipt Date: 20090227
  Transmission Date: 20090719
  Serious: Yes (Life-Threatening)
  Sender: FDA-Public Use
  Company Number: DE-B.I. PHARMACEUTICALS,INC./RIDGEFIELD-2009-DE-01925DE

PATIENT
  Age: 79 Year
  Sex: Male

DRUGS (6)
  1. CATAPRESAN [Suspect]
     Indication: HYPERTENSION
     Dosage: 2ANZ
     Route: 048
     Dates: start: 20000101, end: 20080915
  2. NIFEDIPINE [Concomitant]
     Indication: HYPERTENSION
     Dosage: 3ANZ
     Route: 048
     Dates: start: 19910101, end: 20080911
  3. ENALAPRIL MALEATE [Concomitant]
     Indication: HYPERTENSION
     Dosage: 2ANZ
     Route: 048
     Dates: start: 20030101
  4. HYDROCHLOROTHIAZIDE [Concomitant]
     Indication: HYPERTENSION
     Dosage: 25MG
     Route: 048
     Dates: start: 20000101
  5. ASPIRIN [Concomitant]
     Indication: PROPHYLAXIS
     Dosage: 1ANZ
     Route: 048
     Dates: start: 20000101
  6. MAGNESIUM VERLA [Concomitant]
     Indication: MAGNESIUM DEFICIENCY
     Dosage: 3 PER WEEK
     Route: 048
     Dates: start: 20000101, end: 20080911

REACTIONS (5)
  - ATRIOVENTRICULAR BLOCK FIRST DEGREE [None]
  - BRADYCARDIA [None]
  - FALL [None]
  - SYNCOPE [None]
  - TONGUE BITING [None]
